FAERS Safety Report 4831214-4 (Version None)
Quarter: 2005Q4

REPORT INFORMATION
  Report Type: 
  Country: None (occurrence: None)
  Receive Date: 20051118
  Receipt Date: 20051110
  Transmission Date: 20060501
  Serious: Yes (Hospitalization)
  Sender: FDA-Public Use
  Company Number: BG-AVENTIS-200519874GDDC

PATIENT
  Age: 65 Year
  Sex: Male

DRUGS (1)
  1. RODOGYL [Suspect]
     Indication: PERIODONTITIS
     Dosage: DOSE: 125 MG/0.75 MIU-2 TABLETS 3 TIMES DAILY FOR 2 DAYS,THEN 2 TABLETS 2 TIMES DAILY FOR 4 DAYS.
     Route: 048
     Dates: start: 20050920, end: 20050925

REACTIONS (13)
  - ANOREXIA [None]
  - DEHYDRATION [None]
  - DYSGEUSIA [None]
  - FALL [None]
  - FATIGUE [None]
  - HAEMOGLOBIN DECREASED [None]
  - HEADACHE [None]
  - LEUKOPENIA [None]
  - OLIGURIA [None]
  - PANCYTOPENIA [None]
  - STOMATITIS [None]
  - THROMBOCYTOPENIA [None]
  - VERTIGO [None]
